FAERS Safety Report 9050297 (Version 1)
Quarter: 2013Q1

REPORT INFORMATION
  Report Type: Spontaneous
  Country: BR (occurrence: BR)
  Receive Date: 20130205
  Receipt Date: 20130205
  Transmission Date: 20140127
  Serious: Yes (Other)
  Sender: FDA-Public Use
  Company Number: PHHY2012BR075839

PATIENT
  Sex: Female

DRUGS (3)
  1. RASILEZ [Suspect]
     Indication: HYPERTENSION
     Dosage: 0.5 DF (HALF TABLET OF 300MG), DAILY
     Route: 048
     Dates: start: 2011
  2. RASILEZ [Suspect]
     Dosage: 150 MG, UNK
     Route: 048
     Dates: end: 201206
  3. ATORVASTATIN [Concomitant]
     Indication: INFLAMMATION
     Dosage: 1 DF (20MG), DAILY
     Route: 048
     Dates: start: 2011

REACTIONS (3)
  - Haemorrhoids [Recovered/Resolved]
  - Wrong technique in drug usage process [Unknown]
  - Hypertension [Unknown]
